FAERS Safety Report 9188545 (Version 2)
Quarter: 2013Q4

REPORT INFORMATION
  Report Type: Spontaneous
  Country: US (occurrence: US)
  Receive Date: 20130325
  Receipt Date: 20131016
  Transmission Date: 20140711
  Serious: Yes (Other)
  Sender: FDA-Public Use
  Company Number: US-PFIZER INC-2013093186

PATIENT
  Age: 41 Year
  Sex: Female
  Weight: 61 kg

DRUGS (7)
  1. CHANTIX [Suspect]
     Dosage: UNK
     Dates: start: 20081001, end: 20081218
  2. CHANTIX [Suspect]
     Dosage: STARTING MONTH PACK
     Dates: start: 20081107
  3. CHANTIX [Suspect]
     Dosage: 1 MG, UNK (CONTINUED MONTH PACK)
     Dates: start: 20081209
  4. HYDROCODONE W/ACETAMINOPHEN [Concomitant]
     Dosage: UNK
     Dates: start: 20090921
  5. BUPROPION [Concomitant]
     Dosage: 150 MG, UNK
     Dates: start: 20090921
  6. CARISOPRODOL [Concomitant]
     Dosage: 350 MG, UNK
     Dates: start: 20090921
  7. CLONAZEPAM [Concomitant]
     Dosage: 1 MG, UNK
     Dates: start: 20090921

REACTIONS (1)
  - Suicide attempt [Unknown]
